FAERS Safety Report 26071616 (Version 1)
Quarter: 2025Q4

REPORT INFORMATION
  Report Type: Spontaneous
  Country: US (occurrence: None)
  Receive Date: 20251120
  Receipt Date: 20251120
  Transmission Date: 20260118
  Serious: Yes (Other)
  Sender: FDA-CTU
  Company Number: None

PATIENT
  Sex: Female

DRUGS (12)
  1. CUVITRU [Suspect]
     Active Substance: HUMAN IMMUNOGLOBULIN G
     Indication: Immunodeficiency common variable
     Dosage: OTHER STRENGTH : 8 GM/40ML;?OTHER FREQUENCY : EVERY 14 DAYS;?
     Route: 058
     Dates: start: 20250612
  2. ORENCIA [Suspect]
     Active Substance: ABATACEPT
  3. ATORVASTATIN [Concomitant]
     Active Substance: ATORVASTATIN
  4. BIOTIN TAB 300MCG [Concomitant]
  5. CYMBALTA CAP 30MG [Concomitant]
  6. ELIOUIS TAB 2.5MG [Concomitant]
  7. GABAPENTIN TAB 600MG [Concomitant]
  8. LEVOTHYROXIN TAB 150MCG [Concomitant]
  9. MAGNESIUM TAB 500MG [Concomitant]
  10. METOPROL TAR TAB 50MG [Concomitant]
  11. MULTI VITAMN TAB MINERALS [Concomitant]
  12. NEXIUM CAP 20MG [Concomitant]

REACTIONS (2)
  - Skin cancer [None]
  - Therapy interrupted [None]
